FAERS Safety Report 18435020 (Version 3)
Quarter: 2020Q4

REPORT INFORMATION
  Report Type: Spontaneous
  Country: FR (occurrence: FR)
  Receive Date: 20201027
  Receipt Date: 20201210
  Transmission Date: 20210114
  Serious: No
  Sender: FDA-Public Use
  Company Number: FR-JAZZ-2020-FR-013488

PATIENT

DRUGS (2)
  1. XYREM [Suspect]
     Active Substance: SODIUM OXYBATE
     Indication: NARCOLEPSY
     Dosage: 9 GRAM,UNKNOWN FREQUENCY
     Route: 048
     Dates: start: 201910, end: 202009
  2. XYREM [Suspect]
     Active Substance: SODIUM OXYBATE
     Indication: CATAPLEXY
     Dosage: 7.5 GRAM
     Route: 048
     Dates: start: 202009

REACTIONS (1)
  - Gastrointestinal pain [Recovered/Resolved]
